FAERS Safety Report 7142654-5 (Version None)
Quarter: 2010Q4

REPORT INFORMATION
  Report Type: 
  Country: None (occurrence: None)
  Receive Date: 20101207
  Receipt Date: 20101129
  Transmission Date: 20110411
  Serious: No
  Sender: FDA-Public Use
  Company Number: US-B.I. PHARMACEUTICALS,INC./RIDGEFIELD-2009-BP-08108BP

PATIENT
  Age: 67 Year
  Sex: Male

DRUGS (11)
  1. SPIRIVA [Suspect]
     Indication: CHRONIC OBSTRUCTIVE PULMONARY DISEASE
     Dosage: 18 MCG
     Route: 055
     Dates: start: 20080101
  2. SPIRIVA [Suspect]
     Indication: EMPHYSEMA
  3. ATENOLOL [Concomitant]
     Indication: HYPERTENSION
     Dosage: 50 MG
     Route: 048
  4. ATENOLOL [Concomitant]
     Dosage: 50 MG
     Route: 048
  5. PROTONIX [Concomitant]
     Indication: GASTROOESOPHAGEAL REFLUX DISEASE
     Dosage: 40 MG
     Route: 048
  6. DYAZIDE [Concomitant]
  7. LYCO MATO [Concomitant]
     Dosage: 10 MG
  8. SAW PALMETTO [Concomitant]
  9. PANTOPRAZOLE [Concomitant]
     Indication: GASTROOESOPHAGEAL REFLUX DISEASE
     Dosage: 40 MG
     Route: 048
  10. HYDROCHLOROTHIAZIDE [Concomitant]
     Indication: HYPERTENSION
     Dosage: 25 MG
     Route: 048
  11. LYCOPENE [Concomitant]
     Indication: MACULAR DEGENERATION
     Dosage: 10 MG
     Route: 048

REACTIONS (3)
  - BRONCHITIS [None]
  - COUGH [None]
  - INCREASED UPPER AIRWAY SECRETION [None]
